FAERS Safety Report 7919017-5 (Version None)
Quarter: 2011Q4

REPORT INFORMATION
  Report Type: 
  Country: None (occurrence: None)
  Receive Date: 20111116
  Receipt Date: 20111107
  Transmission Date: 20120403
  Serious: Yes (Other)
  Sender: FDA-Public Use
  Company Number: US-ASTRAZENECA-2011SE67776

PATIENT
  Sex: Female

DRUGS (2)
  1. RADIATION [Suspect]
  2. SYMBICORT [Suspect]
     Route: 055

REACTIONS (2)
  - RADIATION INJURY [None]
  - NEOPLASM MALIGNANT [None]
